FAERS Safety Report 5015264-3 (Version None)
Quarter: 2006Q2

REPORT INFORMATION
  Report Type: 
  Country: None (occurrence: None)
  Receive Date: 20060601
  Receipt Date: 20060531
  Transmission Date: 20061013
  Serious: Yes (Death, Life-Threatening)
  Sender: FDA-Public Use
  Company Number: US-RB-3390-2006

PATIENT
  Sex: Male
  Weight: 70.37 kg

DRUGS (8)
  1. BUPRENORPHINE HCL [Suspect]
     Route: 060
     Dates: start: 20060130, end: 20060130
  2. BUPRENORPHINE HCL [Suspect]
     Route: 060
     Dates: start: 20060131, end: 20060131
  3. CHLORDIAZEPOXIDE HCL [Concomitant]
     Dates: start: 20060131, end: 20060131
  4. CLONIDINE [Concomitant]
     Indication: ALCOHOL WITHDRAWAL SYNDROME
     Dates: start: 20060131, end: 20060131
  5. PROMETHAZINE HCL [Concomitant]
     Indication: NAUSEA
     Dates: start: 20060131, end: 20060131
  6. IBUPROFEN [Concomitant]
     Indication: PAIN
     Dates: start: 20060131, end: 20060131
  7. PARACETAMOL [Concomitant]
     Indication: PAIN
     Dates: start: 20060131, end: 20060131
  8. HYDROXYZINE EMBONATE [Concomitant]
     Indication: ANXIETY
     Dates: start: 20060131, end: 20060131

REACTIONS (1)
  - DEATH [None]
